FAERS Safety Report 26135418 (Version 2)
Quarter: 2025Q4

REPORT INFORMATION
  Report Type: Spontaneous
  Country: GB (occurrence: GB)
  Receive Date: 20251209
  Receipt Date: 20251216
  Transmission Date: 20260118
  Serious: Yes (Hospitalization)
  Sender: MYLAN
  Company Number: GB-MYLANLABS-2025M1104347

PATIENT
  Sex: Female

DRUGS (12)
  1. TOBI PODHALER [Suspect]
     Active Substance: TOBRAMYCIN
     Indication: Cystic fibrosis
     Dosage: 112 MILLIGRAM, BID (INHALE THE CONTENTS OF 4 CAPSULES TWICE A DAY)
  2. TOBI PODHALER [Suspect]
     Active Substance: TOBRAMYCIN
     Dosage: 112 MILLIGRAM, BID (INHALE THE CONTENTS OF 4 CAPSULES TWICE A DAY)
     Route: 055
  3. TOBI PODHALER [Suspect]
     Active Substance: TOBRAMYCIN
     Dosage: 112 MILLIGRAM, BID (INHALE THE CONTENTS OF 4 CAPSULES TWICE A DAY)
     Route: 055
  4. TOBI PODHALER [Suspect]
     Active Substance: TOBRAMYCIN
     Dosage: 112 MILLIGRAM, BID (INHALE THE CONTENTS OF 4 CAPSULES TWICE A DAY)
  5. ELEXACAFTOR\IVACAFTOR\TEZACAFTOR [Concomitant]
     Active Substance: ELEXACAFTOR\IVACAFTOR\TEZACAFTOR
     Dosage: UNK
  6. ELEXACAFTOR\IVACAFTOR\TEZACAFTOR [Concomitant]
     Active Substance: ELEXACAFTOR\IVACAFTOR\TEZACAFTOR
     Dosage: UNK
     Route: 065
  7. ELEXACAFTOR\IVACAFTOR\TEZACAFTOR [Concomitant]
     Active Substance: ELEXACAFTOR\IVACAFTOR\TEZACAFTOR
     Dosage: UNK
     Route: 065
  8. ELEXACAFTOR\IVACAFTOR\TEZACAFTOR [Concomitant]
     Active Substance: ELEXACAFTOR\IVACAFTOR\TEZACAFTOR
     Dosage: UNK
  9. KALYDECO [Concomitant]
     Active Substance: IVACAFTOR
     Dosage: UNK
  10. KALYDECO [Concomitant]
     Active Substance: IVACAFTOR
     Dosage: UNK
     Route: 065
  11. KALYDECO [Concomitant]
     Active Substance: IVACAFTOR
     Dosage: UNK
     Route: 065
  12. KALYDECO [Concomitant]
     Active Substance: IVACAFTOR
     Dosage: UNK

REACTIONS (2)
  - Hospitalisation [Unknown]
  - Product use issue [Unknown]
